FAERS Safety Report 4304573-9 (Version None)
Quarter: 2004Q1

REPORT INFORMATION
  Report Type: 
  Country: None (occurrence: None)
  Receive Date: 20040224
  Receipt Date: 20040211
  Transmission Date: 20041129
  Serious: Yes (Other)
  Sender: FDA-Public Use
  Company Number: IE-JNJFOC-20040202794

PATIENT
  Sex: 0

DRUGS (1)
  1. CONCERTA [Suspect]
     Indication: ATTENTION DEFICIT/HYPERACTIVITY DISORDER

REACTIONS (1)
  - NEUTROPHIL COUNT DECREASED [None]
